FAERS Safety Report 5157326-6 (Version None)
Quarter: 2006Q4

REPORT INFORMATION
  Report Type: 
  Country: None (occurrence: None)
  Receive Date: 20061127
  Receipt Date: 20061031
  Transmission Date: 20070319
  Serious: Yes (Life-Threatening, Hospitalization)
  Sender: FDA-Public Use
  Company Number: PHEH2006US13555

PATIENT
  Age: 27 Year
  Sex: Male
  Weight: 89.342 kg

DRUGS (11)
  1. METHADONE HCL [Suspect]
  2. ALCOHOL [Suspect]
  3. MARIJUANA [Suspect]
  4. GLEEVEC [Suspect]
     Indication: CHRONIC MYELOID LEUKAEMIA
     Dosage: UNK MG, QD
     Route: 048
     Dates: start: 20010521, end: 20030101
  5. GLEEVEC [Suspect]
     Dosage: 800 MG, QD
     Route: 048
     Dates: start: 20050727, end: 20061010
  6. GLEEVEC [Suspect]
     Dosage: 600 MG, QD
     Route: 048
     Dates: start: 20030101, end: 20050727
  7. GLEEVEC [Suspect]
     Dosage: 400 MG, UNK
     Dates: start: 20061108
  8. CAPTOPRIL [Concomitant]
     Dosage: 25 MG, TID
  9. ASPIRIN [Concomitant]
     Dosage: 325 MG, QD
  10. PERCOCET [Suspect]
  11. FUROSEMIDE [Concomitant]
     Dosage: 20 MG, QD

REACTIONS (17)
  - ANXIETY [None]
  - BACK PAIN [None]
  - BACTERAEMIA [None]
  - CARDIAC ENZYMES INCREASED [None]
  - CARDIAC FAILURE CONGESTIVE [None]
  - CARDIOMYOPATHY [None]
  - CARDIOMYOPATHY ALCOHOLIC [None]
  - DEPRESSION [None]
  - DILATATION VENTRICULAR [None]
  - EJECTION FRACTION DECREASED [None]
  - INFLUENZA LIKE ILLNESS [None]
  - INTUBATION [None]
  - LOSS OF CONSCIOUSNESS [None]
  - MUSCLE SPASMS [None]
  - OVERDOSE [None]
  - PNEUMONIA ASPIRATION [None]
  - VIRAL MYOCARDITIS [None]
